FAERS Safety Report 15009110 (Version 1)
Quarter: 2018Q2

REPORT INFORMATION
  Report Type: Spontaneous
  Country: FR (occurrence: FR)
  Receive Date: 20180614
  Receipt Date: 20180614
  Transmission Date: 20180711
  Serious: Yes (Other)
  Sender: FDA-Public Use
  Company Number: FR-MERCK KGAA-2049385

PATIENT
  Age: 70 Year
  Sex: Female
  Weight: 100 kg

DRUGS (6)
  1. NOVOTHYROX [Suspect]
     Active Substance: LEVOTHYROXINE SODIUM
     Route: 048
     Dates: start: 20171118, end: 20171125
  2. L THYROXIN HENNING [Suspect]
     Active Substance: LEVOTHYROXINE SODIUM
     Route: 048
     Dates: start: 20171126, end: 20180124
  3. THYROFIX [Suspect]
     Active Substance: LEVOTHYROXINE SODIUM
     Route: 048
     Dates: start: 20180125, end: 20180215
  4. NOVOTHYROX [Suspect]
     Active Substance: LEVOTHYROXINE SODIUM
     Indication: THYROID DISORDER
     Route: 048
     Dates: start: 201703, end: 20171016
  5. L THYROXIN HENNING [Suspect]
     Active Substance: LEVOTHYROXINE SODIUM
     Route: 048
     Dates: start: 20171017, end: 20171117
  6. EUTHYRAL(NOVOTHYRAL) [Suspect]
     Active Substance: LEVOTHYROXINE SODIUM\LIOTHYRONINE SODIUM
     Route: 048
     Dates: start: 20180216

REACTIONS (13)
  - Alopecia [Recovering/Resolving]
  - Asthenia [Recovering/Resolving]
  - Depressed mood [Recovering/Resolving]
  - Blood thyroid stimulating hormone increased [Recovered/Resolved]
  - Migraine [Recovering/Resolving]
  - Pain [Recovering/Resolving]
  - Sleep disorder [Recovering/Resolving]
  - Nightmare [Recovering/Resolving]
  - Dyspnoea [Recovering/Resolving]
  - Gastrointestinal motility disorder [Recovering/Resolving]
  - Amnesia [Recovering/Resolving]
  - Nocturia [Recovering/Resolving]
  - Hot flush [Recovering/Resolving]

NARRATIVE: CASE EVENT DATE: 201703
